FAERS Safety Report 5298396-4 (Version None)
Quarter: 2007Q2

REPORT INFORMATION
  Report Type: 
  Country: None (occurrence: None)
  Receive Date: 20070416
  Receipt Date: 20070404
  Transmission Date: 20071010
  Serious: Yes (Other)
  Sender: FDA-Public Use
  Company Number: IE-PFIZER INC-2007027737

PATIENT
  Age: 79 Year
  Sex: Male

DRUGS (3)
  1. ZYVOX [Suspect]
     Indication: WOUND INFECTION
  2. SEROTONIN ANTAGONISTS [Concomitant]
  3. DRUG, UNSPECIFIED [Concomitant]

REACTIONS (1)
  - URINARY RETENTION [None]
